FAERS Safety Report 15017624 (Version 1)
Quarter: 2018Q2

REPORT INFORMATION
  Report Type: Spontaneous
  Country: US (occurrence: US)
  Receive Date: 20180531
  Receipt Date: 20180531
  Transmission Date: 20180711
  Serious: Yes (Disabling)
  Sender: FDA-Public Use
  Company Number: None

PATIENT
  Age: 32 Year
  Sex: Female
  Weight: 74.25 kg

DRUGS (1)
  1. MIRENA [Suspect]
     Active Substance: LEVONORGESTREL
     Indication: CONTRACEPTION
     Dosage: ?          QUANTITY:1 IUD;OTHER FREQUENCY:5 YEARS;?
     Route: 067

REACTIONS (3)
  - Planning to become pregnant [None]
  - Emotional distress [None]
  - Infertility tests [None]

NARRATIVE: CASE EVENT DATE: 20180501
